FAERS Safety Report 14882259 (Version 1)
Quarter: 2018Q2

REPORT INFORMATION
  Report Type: Spontaneous
  Country: FR (occurrence: FR)
  Receive Date: 20180511
  Receipt Date: 20180511
  Transmission Date: 20180711
  Serious: Yes (Congenital Anomaly)
  Sender: FDA-Public Use
  Company Number: FR-GUERBET-FR-20180255

PATIENT
  Age: 1 Day
  Sex: Female
  Weight: 3.52 kg

DRUGS (1)
  1. OPTIJECT [Suspect]
     Active Substance: IOVERSOL
     Indication: COMPUTERISED TOMOGRAM
     Route: 064
     Dates: start: 201612, end: 201612

REACTIONS (1)
  - Talipes [Recovering/Resolving]

NARRATIVE: CASE EVENT DATE: 20170812
